FAERS Safety Report 8849200 (Version 1)
Quarter: 2012Q4

REPORT INFORMATION
  Report Type: Spontaneous
  Country: US (occurrence: None)
  Receive Date: 20121019
  Receipt Date: 20121019
  Transmission Date: 20130627
  Serious: Yes (Death, Life-Threatening, Hospitalization, Other)
  Sender: FDA-Public Use
  Company Number: None

PATIENT
  Age: 43 Year
  Sex: Female
  Weight: 42.64 kg

DRUGS (1)
  1. METHYLPREDNISOLONE [Suspect]

REACTIONS (7)
  - Delirium [None]
  - Disorientation [None]
  - Pyrexia [None]
  - Headache [None]
  - Abasia [None]
  - Coma [None]
  - Infection [None]
